FAERS Safety Report 8923702 (Version 1)
Quarter: 2012Q4

REPORT INFORMATION
  Report Type: Spontaneous
  Country: US (occurrence: None)
  Receive Date: 20121109
  Receipt Date: 20121109
  Transmission Date: 20130627
  Serious: Yes (Other)
  Sender: FDA-Public Use
  Company Number: 2011S1000713

PATIENT
  Age: 84 Year
  Sex: Male
  Weight: 109 kg

DRUGS (4)
  1. CUBICIN [Suspect]
     Dosage: 8 mg/kg; q24h;unk
  2. VANCOMYCIN [Concomitant]
  3. DIPHENYDRAMINE [Concomitant]
  4. RIFAMPIN [Concomitant]

REACTIONS (1)
  - Blood creatine phosphokinase increased [None]
